FAERS Safety Report 5522335-1 (Version None)
Quarter: 2007Q4

REPORT INFORMATION
  Report Type: 
  Country: None (occurrence: None)
  Receive Date: 20071120
  Receipt Date: 20071113
  Transmission Date: 20080405
  Serious: Yes (Hospitalization, Other)
  Sender: FDA-Public Use
  Company Number: FR-ELI_LILLY_AND_COMPANY-FR200710004383

PATIENT
  Age: 83 Year
  Sex: Female
  Weight: 64 kg

DRUGS (12)
  1. FORTEO [Suspect]
     Indication: OSTEOPOROSIS
     Dosage: 20 UG, DAILY (1/D)
     Route: 058
     Dates: start: 20060705, end: 20071008
  2. FORTEO [Suspect]
     Dosage: 20 UG, DAILY (1/D)
     Route: 058
     Dates: start: 20071001
  3. NITRODERM [Concomitant]
     Indication: CORONARY ARTERY DISEASE
     Dosage: 1 D/F, EACH MORNING
  4. ALDACTONE [Concomitant]
     Indication: CORONARY ARTERY DISEASE
     Dosage: 0.5 D/F, EACH MORNING
  5. LASIX [Concomitant]
     Indication: HYPERTENSION
     Dosage: 2 D/F, DAILY (1/D)
     Route: 048
  6. SEREVENT [Concomitant]
     Indication: PULMONARY RADIATION INJURY
  7. QVAR 40 [Concomitant]
     Indication: PULMONARY RADIATION INJURY
  8. SPIRIVA [Concomitant]
     Indication: PULMONARY RADIATION INJURY
  9. LEVOTHYROXINE SODIUM [Concomitant]
     Indication: HYPOTHYROIDISM
  10. LORAZEPAM [Concomitant]
     Indication: DEPRESSION
  11. CONTRAMAL [Concomitant]
     Indication: ARTHRALGIA
     Dosage: 10 GTT, 3/D
     Route: 048
     Dates: start: 20070727
  12. CALTRATE + D [Concomitant]
     Indication: OSTEOPOROSIS
     Dosage: 1 D/F, DAILY (1/D)
     Route: 048
     Dates: start: 20070727

REACTIONS (8)
  - ACUTE PULMONARY OEDEMA [None]
  - ANGINA PECTORIS [None]
  - ARTHRALGIA [None]
  - BRONCHITIS [None]
  - DEPRESSION [None]
  - INTERVERTEBRAL DISC PROTRUSION [None]
  - MUSCULOSKELETAL CHEST PAIN [None]
  - WEIGHT DECREASED [None]
